FAERS Safety Report 4540337-9 (Version None)
Quarter: 2004Q4

REPORT INFORMATION
  Report Type: 
  Country: None (occurrence: None)
  Receive Date: 20041223
  Receipt Date: 20041213
  Transmission Date: 20050328
  Serious: Yes (Hospitalization)
  Sender: FDA-Public Use
  Company Number: TPA2004A01540

PATIENT
  Age: 72 Year
  Sex: Female
  Weight: 76.6579 kg

DRUGS (8)
  1. ACTOS [Suspect]
     Indication: DIABETES MELLITUS NON-INSULIN-DEPENDENT
     Dosage: 45 MG, 1 IN 1 D, PER ORAL; 30 MG, 1 IN1 D, PER ORAL; 45 MG, 1 IN 1 D, PER ORAL
     Route: 048
     Dates: end: 20041113
  2. ACTOS [Suspect]
     Indication: DIABETES MELLITUS NON-INSULIN-DEPENDENT
     Dosage: 45 MG, 1 IN 1 D, PER ORAL; 30 MG, 1 IN1 D, PER ORAL; 45 MG, 1 IN 1 D, PER ORAL
     Route: 048
     Dates: start: 20021213
  3. ACTOS [Suspect]
     Indication: DIABETES MELLITUS NON-INSULIN-DEPENDENT
     Dosage: 45 MG, 1 IN 1 D, PER ORAL; 30 MG, 1 IN1 D, PER ORAL; 45 MG, 1 IN 1 D, PER ORAL
     Route: 048
     Dates: start: 20041113
  4. AMARYL (GLIMEPIRIDE) (4 MILLIGRAM) [Concomitant]
  5. ASPIRIN (ACETYLSALICYLIC ACID) (325 MILLIGRAM) [Concomitant]
  6. BENADRYL (DIPHENHYDRAMINE) (50 MILLIGRAM) [Concomitant]
  7. ACETAMINOPHEN (PARACETAMOL) (650 MILLIGRAM) [Concomitant]
  8. NEURONTIN (GABAPENTIN) (300 MILLIGRAM) [Concomitant]

REACTIONS (6)
  - ANEURYSM [None]
  - BLOOD GLUCOSE ABNORMAL [None]
  - CARDIAC DISORDER [None]
  - DRUG EFFECT DECREASED [None]
  - VASCULAR OCCLUSION [None]
  - WEIGHT INCREASED [None]
